FAERS Safety Report 12869338 (Version 2)
Quarter: 2016Q4

REPORT INFORMATION
  Report Type: Report from Study
  Country: BR (occurrence: BR)
  Receive Date: 20161021
  Receipt Date: 20161111
  Transmission Date: 20170207
  Serious: Yes (Other)
  Sender: FDA-Public Use
  Company Number: PHHY2016BR115978

PATIENT
  Sex: Male
  Weight: 90 kg

DRUGS (3)
  1. EXJADE [Suspect]
     Active Substance: DEFERASIROX
     Dosage: 500 MG, QD (1 TABLET)
     Route: 065
     Dates: start: 20130510
  2. EXJADE [Suspect]
     Active Substance: DEFERASIROX
     Indication: HAEMOCHROMATOSIS
     Dosage: 1000 MG, QD
     Route: 048
     Dates: start: 2012
  3. EXJADE [Suspect]
     Active Substance: DEFERASIROX
     Dosage: 500 MG, BID (2 TABLETS)
     Route: 065

REACTIONS (8)
  - Cardiac failure [Recovering/Resolving]
  - Blood iron increased [Unknown]
  - Cardiac siderosis [Recovering/Resolving]
  - Drug ineffective [Unknown]
  - Liver iron concentration increased [Unknown]
  - Skin discolouration [Unknown]
  - Weight increased [Unknown]
  - Diarrhoea [Unknown]
